FAERS Safety Report 18542011 (Version 2)
Quarter: 2021Q1

REPORT INFORMATION
  Report Type: Report from Study
  Country: DE (occurrence: DE)
  Receive Date: 20201124
  Receipt Date: 20210119
  Transmission Date: 20210419
  Serious: Yes (Death, Hospitalization, Other)
  Sender: FDA-Public Use
  Company Number: NVSC2020DE249266

PATIENT
  Age: 48 Year
  Sex: Male
  Weight: 95 kg

DRUGS (26)
  1. FUROSEMID [Concomitant]
     Active Substance: FUROSEMIDE
     Indication: PRODUCT USED FOR UNKNOWN INDICATION
     Dosage: UNK (BREAK)
     Route: 042
     Dates: start: 20201110
  2. KONAKION [Concomitant]
     Active Substance: PHYTONADIONE
     Indication: PRODUCT USED FOR UNKNOWN INDICATION
     Dosage: 1 DF, QW
     Route: 042
     Dates: start: 20201110
  3. COLCHICUM [Concomitant]
     Active Substance: COLCHICINE
     Indication: IMMUNOSUPPRESSION
     Dosage: UNK
     Route: 065
  4. HEPARIN [Concomitant]
     Active Substance: HEPARIN SODIUM
     Indication: PRODUCT USED FOR UNKNOWN INDICATION
     Dosage: UNK (LR 0.5 ML/H) (15000 IE/50 ML)
     Route: 042
     Dates: start: 20201110
  5. INSULIN [Concomitant]
     Active Substance: INSULIN NOS
     Indication: PRODUCT USED FOR UNKNOWN INDICATION
     Dosage: UNK (40 IE/40 ML), ACCORDING BLOOD GLUCOSE
     Route: 042
     Dates: start: 20201110
  6. ILARIS [Suspect]
     Active Substance: CANAKINUMAB
     Indication: FAMILIAL MEDITERRANEAN FEVER
     Dosage: 150 MG, Q4W
     Route: 058
     Dates: start: 201711, end: 202007
  7. ANAKINRA [Concomitant]
     Active Substance: ANAKINRA
     Indication: PRODUCT USED FOR UNKNOWN INDICATION
     Dosage: 100 MG, 1 X TGL (EVERY OTHER DAY)
     Route: 058
     Dates: start: 20201110
  8. PROGRAF [Concomitant]
     Active Substance: TACROLIMUS
     Indication: RENAL TRANSPLANT
     Dosage: 3.5 MG, BID
     Route: 048
     Dates: start: 200811
  9. GANCICLOVIR. [Concomitant]
     Active Substance: GANCICLOVIR
     Indication: PRODUCT USED FOR UNKNOWN INDICATION
     Dosage: 100 MG, QD (1?0?0)
     Route: 042
     Dates: start: 20201110
  10. CLONAZEPAM. [Concomitant]
     Active Substance: CLONAZEPAM
     Indication: PRODUCT USED FOR UNKNOWN INDICATION
     Dosage: 0.5 MG (2?0?2)
     Route: 048
     Dates: start: 20201110
  11. AMIKACIN. [Concomitant]
     Active Substance: AMIKACIN
     Indication: IMMUNOSUPPRESSION
     Route: 065
  12. CANAKINUMAB. [Concomitant]
     Active Substance: CANAKINUMAB
     Indication: IMMUNOSUPPRESSION
     Route: 065
  13. VIGANTOLETTEN [Concomitant]
     Active Substance: CHOLECALCIFEROL
     Indication: PRODUCT USED FOR UNKNOWN INDICATION
     Dosage: UNK UNK, BID (1?0?1)
     Route: 048
     Dates: start: 20201110
  14. NEOSTIGMIN [Concomitant]
     Active Substance: NEOSTIGMINE
     Indication: PRODUCT USED FOR UNKNOWN INDICATION
     Dosage: 1.5 MG, UNKNOWN
     Route: 042
     Dates: start: 20201110
  15. LEVETIRACETAM. [Concomitant]
     Active Substance: LEVETIRACETAM
     Indication: PRODUCT USED FOR UNKNOWN INDICATION
     Dosage: 750 MG, BID (1?0?1)
     Route: 048
     Dates: start: 20201110
  16. URBASON [Concomitant]
     Active Substance: METHYLPREDNISOLONE
     Indication: RENAL TRANSPLANT
     Dosage: 4 MG, QD
     Route: 048
     Dates: start: 200811
  17. CERNEVIT [Concomitant]
     Active Substance: VITAMINS
     Indication: PRODUCT USED FOR UNKNOWN INDICATION
     Dosage: 1 DF, QD (1 AMP)
     Route: 042
     Dates: start: 20201110
  18. NUTRISON ENERGY MULTI FIBER [Concomitant]
     Indication: PRODUCT USED FOR UNKNOWN INDICATION
     Dosage: UNK (LR 5G ML/HR)
     Route: 048
     Dates: start: 20201110
  19. TACROLIMUS. [Concomitant]
     Active Substance: TACROLIMUS
     Indication: PRODUCT USED FOR UNKNOWN INDICATION
     Dosage: 1 MG (3?0?3)
     Route: 048
     Dates: start: 20201110
  20. VALCYTE [Concomitant]
     Active Substance: VALGANCICLOVIR HYDROCHLORIDE
     Indication: PRODUCT USED FOR UNKNOWN INDICATION
     Dosage: UNK (BREAK)
     Route: 048
     Dates: start: 20201110
  21. COTRIMOXAZOLE [Concomitant]
     Active Substance: SULFAMETHOXAZOLE\TRIMETHOPRIM
     Indication: PRODUCT USED FOR UNKNOWN INDICATION
     Dosage: 960 MG (EVERY OTHER DAY)
     Route: 048
     Dates: start: 20201110
  22. KALIUMCHLORIDE [Concomitant]
     Indication: PRODUCT USED FOR UNKNOWN INDICATION
     Dosage: 150 ML (ACCORDING TO POTASSIUM LEVEL)
     Route: 042
     Dates: start: 20201110
  23. PREDNISOLONE. [Concomitant]
     Active Substance: PREDNISOLONE
     Indication: PRODUCT USED FOR UNKNOWN INDICATION
     Dosage: 20 MG, UNKNOWN
     Route: 042
     Dates: start: 20201110
  24. MYFORTIC [Concomitant]
     Active Substance: MYCOPHENOLATE SODIUM
     Indication: RENAL TRANSPLANT
     Dosage: 720 MG, BID
     Route: 048
     Dates: start: 200811
  25. NEXIUM [Concomitant]
     Active Substance: ESOMEPRAZOLE MAGNESIUM
     Indication: PRODUCT USED FOR UNKNOWN INDICATION
     Dosage: 40 MG, TID (1?1?1)
     Route: 048
     Dates: start: 20201110
  26. ASPIRIN. [Concomitant]
     Active Substance: ASPIRIN
     Indication: PRODUCT USED FOR UNKNOWN INDICATION
     Dosage: 100 MG, QD (1?0?0)
     Route: 048
     Dates: start: 20201110

REACTIONS (13)
  - Acute kidney injury [Unknown]
  - COVID-19 [Fatal]
  - Headache [Fatal]
  - Dysphonia [Fatal]
  - Myalgia [Fatal]
  - Pyrexia [Fatal]
  - Productive cough [Fatal]
  - Diarrhoea [Fatal]
  - Oropharyngeal pain [Fatal]
  - Pain in extremity [Fatal]
  - Respiratory failure [Unknown]
  - Acute respiratory distress syndrome [Unknown]
  - Gastric ulcer [Unknown]

NARRATIVE: CASE EVENT DATE: 202005
